FAERS Safety Report 4710510-5 (Version None)
Quarter: 2005Q3

REPORT INFORMATION
  Report Type: 
  Country: None (occurrence: None)
  Receive Date: 20050711
  Receipt Date: 20050627
  Transmission Date: 20060218
  Serious: Yes (Life-Threatening, Other)
  Sender: FDA-Public Use
  Company Number: PHEH2005US07270

PATIENT
  Age: 47 Year
  Weight: 130 kg

DRUGS (1)
  1. ELIDEL [Suspect]
     Indication: ECZEMA
     Dosage: UNK, BID
     Route: 061
     Dates: start: 20020425, end: 20030507

REACTIONS (1)
  - B-CELL LYMPHOMA [None]
